FAERS Safety Report 23131972 (Version 1)
Quarter: 2023Q4

REPORT INFORMATION
  Report Type: Spontaneous
  Country: AU (occurrence: AU)
  Receive Date: 20231101
  Receipt Date: 20231101
  Transmission Date: 20240110
  Serious: Yes (Hospitalization)
  Sender: FDA-Public Use
  Company Number: AU-BoehringerIngelheim-2023-BI-270020

PATIENT
  Age: 42 Year
  Sex: Male

DRUGS (1)
  1. EMPAGLIFLOZIN\METFORMIN HYDROCHLORIDE [Suspect]
     Active Substance: EMPAGLIFLOZIN\METFORMIN HYDROCHLORIDE
     Indication: Type 2 diabetes mellitus

REACTIONS (6)
  - Abdominal pain [Recovered/Resolved]
  - Diarrhoea haemorrhagic [Unknown]
  - Diarrhoea haemorrhagic [Unknown]
  - Extra dose administered [Unknown]
  - Flatulence [Unknown]
  - Hepatic steatosis [Unknown]

NARRATIVE: CASE EVENT DATE: 20231001
